FAERS Safety Report 8285545 (Version 2)
Quarter: 2014Q1

REPORT INFORMATION
  Report Type: Report from Study
  Country: FR (occurrence: FR)
  Receive Date: 20111213
  Receipt Date: 20140130
  Transmission Date: 20141002
  Serious: Yes (Hospitalization)
  Sender: FDA-Public Use
  Company Number: FR-ROCHE-1020645

PATIENT
  Age: 68 Year
  Sex: Male

DRUGS (3)
  1. MYCOPHENOLATE MOFETIL [Suspect]
     Indication: TRANSPLANT REJECTION
     Route: 002
     Dates: start: 20100813
  2. PREDNISONE [Suspect]
     Indication: TRANSPLANT REJECTION
     Route: 002
     Dates: start: 20100813
  3. CYCLOSPORIN [Suspect]
     Indication: TRANSPLANT REJECTION
     Route: 002
     Dates: start: 20100813

REACTIONS (3)
  - Kidney transplant rejection [Recovered/Resolved with Sequelae]
  - Pancytopenia [Recovered/Resolved with Sequelae]
  - Sepsis [Recovered/Resolved with Sequelae]
